FAERS Safety Report 8383359 (Version 5)
Quarter: 2012Q4

REPORT INFORMATION
  Report Type: 
  Country: US (occurrence: US)
  Receive Date: 20120201
  Receipt Date: 20120927
  Transmission Date: 20130627
  Serious: Yes (Hospitalization, Congenital Anomaly)
  Sender: FDA-Public Use
  Company Number: US-GLAXOSMITHKLINE-A0930793A

PATIENT
  Age: 0 Year
  Sex: Male
  Weight: 1.9 kg

DRUGS (5)
  1. PAXIL [Suspect]
     Indication: ANXIETY
     Dosage: 20MG Per day
     Route: 064
     Dates: start: 20000209
  2. AMPICILLIN [Concomitant]
  3. BETAMETHASONE [Concomitant]
  4. STADOL [Concomitant]
  5. MAGNESIUM [Concomitant]

REACTIONS (9)
  - Congenital hydrocephalus [Unknown]
  - Neonatal respiratory distress syndrome [Unknown]
  - Intraventricular haemorrhage [Unknown]
  - Premature baby [Unknown]
  - Hydrocele [Unknown]
  - Congenital torticollis [Unknown]
  - Gastrooesophageal reflux disease [Unknown]
  - Attention deficit/hyperactivity disorder [Unknown]
  - Foetal exposure during pregnancy [Unknown]
